FAERS Safety Report 8559786-7 (Version None)
Quarter: 2012Q3

REPORT INFORMATION
  Report Type: 
  Country: None (occurrence: None)
  Receive Date: 20120727
  Receipt Date: 20120727
  Transmission Date: 20120928
  Serious: Yes (Life-Threatening)
  Sender: FDA-Public Use
  Company Number: None

PATIENT
  Age: 54 Year
  Sex: Male
  Weight: 86.8 kg

DRUGS (1)
  1. INFLIXIMAB [Suspect]
     Indication: CROHN'S DISEASE
     Dosage: 450 MG ONCE IV
     Route: 042
     Dates: start: 20120718, end: 20120718

REACTIONS (6)
  - HYPERTENSION [None]
  - MYALGIA [None]
  - MUSCLE SPASMS [None]
  - RASH [None]
  - RESPIRATORY DEPRESSION [None]
  - FLUSHING [None]
